FAERS Safety Report 10654066 (Version 1)
Quarter: 2014Q4

REPORT INFORMATION
  Report Type: Spontaneous
  Country: US (occurrence: None)
  Receive Date: 20141215
  Receipt Date: 20141215
  Transmission Date: 20150529
  Serious: Yes (Hospitalization)
  Sender: FDA-Public Use
  Company Number: None

PATIENT
  Age: 50 Year
  Sex: Male
  Weight: 92.3 kg

DRUGS (13)
  1. IRON SUCROSE [Concomitant]
     Active Substance: IRON SUCROSE
  2. OXYCODONE [Concomitant]
     Active Substance: OXYCODONE
  3. DARBEPOETIN [Concomitant]
     Active Substance: DARBEPOETIN ALFA
  4. ZOFRAN [Concomitant]
     Active Substance: ONDANSETRON HYDROCHLORIDE
  5. GLARGINE [Concomitant]
  6. NEXIUM [Concomitant]
     Active Substance: ESOMEPRAZOLE MAGNESIUM
  7. GABAPENTIN. [Concomitant]
     Active Substance: GABAPENTIN
  8. FUROSEMIDE. [Concomitant]
     Active Substance: FUROSEMIDE
  9. LACTULOSE. [Concomitant]
     Active Substance: LACTULOSE
  10. DULCOLAX [Concomitant]
     Active Substance: BISACODYL OR DOCUSATE SODIUM
  11. DOCUSATE [Concomitant]
     Active Substance: DOCUSATE
  12. NEXAVAR [Suspect]
     Active Substance: SORAFENIB
     Indication: HEPATOCELLULAR CARCINOMA
     Route: 048
     Dates: start: 20140715, end: 20140719
  13. HUMALOG [Concomitant]
     Active Substance: INSULIN LISPRO

REACTIONS (6)
  - Tremor [None]
  - Asthenia [None]
  - Confusional state [None]
  - Somnolence [None]
  - Aggression [None]
  - Lethargy [None]

NARRATIVE: CASE EVENT DATE: 20140720
